FAERS Safety Report 24283705 (Version 1)
Quarter: 2024Q3

REPORT INFORMATION
  Report Type: Spontaneous
  Country: DE (occurrence: DE)
  Receive Date: 20240905
  Receipt Date: 20240905
  Transmission Date: 20241017
  Serious: Yes (Other)
  Sender: ESPERION THERAPEUTICS
  Company Number: DE-DSJP-DSE-2024-139206

PATIENT
  Age: 72 Year
  Sex: Female
  Weight: 59.5 kg

DRUGS (3)
  1. BEMPEDOIC ACID\EZETIMIBE [Suspect]
     Active Substance: BEMPEDOIC ACID\EZETIMIBE
     Indication: Hypercholesterolaemia
     Dosage: 1 DF (180/10 MG), QD (0-0-1)
     Route: 048
     Dates: start: 20240110
  2. LEVOTHYROXINE SODIUM\POTASSIUM IODIDE [Concomitant]
     Active Substance: LEVOTHYROXINE SODIUM\POTASSIUM IODIDE
     Indication: Thyroid disorder
     Dosage: UNK ( THYRONAJOD 75 STARTED FOR YEARS) (1/2-0-0)
     Route: 065
  3. LEVOTHYROXINE SODIUM\POTASSIUM IODIDE [Concomitant]
     Active Substance: LEVOTHYROXINE SODIUM\POTASSIUM IODIDE
     Indication: Goitre

REACTIONS (6)
  - Thrombosis [Unknown]
  - Skin disorder [Not Recovered/Not Resolved]
  - Skin abrasion [Unknown]
  - Abdominal pain lower [Not Recovered/Not Resolved]
  - Muscle spasms [Not Recovered/Not Resolved]
  - Muscle spasms [Not Recovered/Not Resolved]

NARRATIVE: CASE EVENT DATE: 20240201
